FAERS Safety Report 16249284 (Version 1)
Quarter: 2019Q2

REPORT INFORMATION
  Report Type: Report from Study
  Country: DE (occurrence: DE)
  Receive Date: 20190429
  Receipt Date: 20190429
  Transmission Date: 20190711
  Serious: Yes (Other)
  Sender: FDA-Public Use
  Company Number: DE-BRISTOL-MYERS SQUIBB COMPANY-BMS-2018-113463

PATIENT
  Age: 70 Year
  Sex: Male

DRUGS (13)
  1. CARVEDIOL [Concomitant]
     Active Substance: CARVEDILOL
     Indication: CEREBROVASCULAR DISORDER
     Dosage: 12.5 MG, UNK
     Route: 065
  2. MOXONIDIN [Concomitant]
     Active Substance: MOXONIDINE
     Indication: CEREBROVASCULAR DISORDER
     Dosage: 0.3 MG, UNK
     Route: 065
  3. NIVOLUMAB [Suspect]
     Active Substance: NIVOLUMAB
     Indication: RENAL CELL CARCINOMA
     Dosage: 240 MG, Q2WK
     Route: 042
     Dates: start: 20181017
  4. ASPIRIN. [Concomitant]
     Active Substance: ASPIRIN
     Indication: CEREBROVASCULAR DISORDER
     Dosage: 100 MG, UNK
     Route: 065
  5. SIMVASTATIN. [Concomitant]
     Active Substance: SIMVASTATIN
     Indication: METABOLIC DISORDER
     Dosage: 40 MG, UNK
     Route: 065
  6. URAPIDIL [Concomitant]
     Active Substance: URAPIDIL
     Indication: CEREBROVASCULAR DISORDER
     Dosage: 90 MG, UNK
     Route: 065
  7. L-THYROXIN                         /00068001/ [Concomitant]
     Active Substance: LEVOTHYROXINE
     Indication: METABOLIC DISORDER
     Dosage: 175 ?G, UNK
     Route: 065
  8. AMLODIPIN                          /00972401/ [Concomitant]
     Active Substance: AMLODIPINE BESYLATE
     Indication: CEREBROVASCULAR DISORDER
     Dosage: 10 MG, UNK
     Route: 065
  9. OXYCODONE [Concomitant]
     Active Substance: OXYCODONE
     Indication: NEOPLASM MALIGNANT
     Dosage: 20 MG, UNK
     Route: 065
  10. PANTOPRAZOLE [Concomitant]
     Active Substance: PANTOPRAZOLE
     Indication: CEREBROVASCULAR DISORDER
     Dosage: 40 MG, UNK
     Route: 065
  11. SITAGLIPTIN [Concomitant]
     Active Substance: SITAGLIPTIN
     Indication: METABOLIC DISORDER
     Dosage: 25 MG, UNK
     Route: 065
  12. OXYCODONE [Concomitant]
     Active Substance: OXYCODONE
     Indication: PRODUCT USED FOR UNKNOWN INDICATION
     Dosage: 5 MG, AS NEEDED
     Route: 065
  13. METAMIZOLE [Concomitant]
     Active Substance: METAMIZOLE
     Indication: NEOPLASM MALIGNANT
     Dosage: 4 G, UNK
     Route: 065

REACTIONS (8)
  - Constipation [Not Recovered/Not Resolved]
  - Chills [Recovered/Resolved]
  - Nausea [Recovered/Resolved]
  - Pain [Unknown]
  - Dyspnoea [Not Recovered/Not Resolved]
  - Malignant neoplasm progression [Not Recovered/Not Resolved]
  - Sjogren^s syndrome [Not Recovered/Not Resolved]
  - Anaemia [Not Recovered/Not Resolved]

NARRATIVE: CASE EVENT DATE: 20181022
